FAERS Safety Report 4885450-1 (Version None)
Quarter: 2005Q4

REPORT INFORMATION
  Report Type: 
  Country: None (occurrence: None)
  Receive Date: 20051220
  Receipt Date: 20050708
  Transmission Date: 20060501
  Serious: Yes (Other)
  Sender: FDA-Public Use
  Company Number: HQWYE111011JUL05

PATIENT
  Age: 81 Year
  Sex: Female
  Weight: 59.02 kg

DRUGS (5)
  1. EFFEXOR XR [Suspect]
     Indication: NEUROPATHY
     Dosage: 75 MG 1X PER 1 DAY, ORAL
     Route: 048
     Dates: start: 20050622
  2. MULTIVITAMINS, PLAIN (MULTIVITAMINS, PLAIN) [Concomitant]
  3. UNSPECIFIED ANTIOXIDANT (UNSPECIFIED ANTIOXIDANT) [Concomitant]
  4. CALCIUM (CALCIUM) [Concomitant]
  5. FOSAMAX [Concomitant]

REACTIONS (3)
  - CONDITION AGGRAVATED [None]
  - VISION BLURRED [None]
  - VISUAL DISTURBANCE [None]
